FAERS Safety Report 8150848-5 (Version None)
Quarter: 2012Q1

REPORT INFORMATION
  Report Type: 
  Country: None (occurrence: None)
  Receive Date: 20120220
  Receipt Date: 20120207
  Transmission Date: 20120608
  Serious: Yes (Hospitalization, Other)
  Sender: FDA-Public Use
  Company Number: US-ELI_LILLY_AND_COMPANY-US201107005074

PATIENT
  Sex: Female
  Weight: 56.23 kg

DRUGS (6)
  1. PROZAC [Suspect]
     Dosage: 40 MG, QD
     Dates: start: 20091006
  2. MARIJUANA [Concomitant]
  3. PROZAC [Suspect]
     Dosage: 20 MG, QD
  4. BENADRYL [Concomitant]
     Indication: INSOMNIA
     Dosage: UNK, PRN
  5. PROZAC [Suspect]
     Dosage: 10 MG, QD
  6. PROZAC [Suspect]
     Dosage: 30 MG, QD

REACTIONS (14)
  - DEPRESSION [None]
  - HOMICIDAL IDEATION [None]
  - AGGRESSION [None]
  - BIPOLAR DISORDER [None]
  - SUICIDAL IDEATION [None]
  - OVERDOSE [None]
  - NERVOUSNESS [None]
  - EMOTIONAL DISORDER [None]
  - BORDERLINE PERSONALITY DISORDER [None]
  - HOMICIDE [None]
  - TOXICITY TO VARIOUS AGENTS [None]
  - MOOD SWINGS [None]
  - MENTAL DISORDER [None]
  - SELF INJURIOUS BEHAVIOUR [None]
